FAERS Safety Report 10238803 (Version 2)
Quarter: 2014Q2

REPORT INFORMATION
  Report Type: Spontaneous
  Country: US (occurrence: None)
  Receive Date: 20140612
  Receipt Date: 20140619
  Transmission Date: 20141212
  Serious: Yes (Death, Other)
  Sender: FDA-Public Use
  Company Number: ADR-2014-00993

PATIENT
  Age: 52 Year
  Sex: Female

DRUGS (4)
  1. COMPOUNDED BACLOFEN INTRATHECAL [Suspect]
     Indication: CANCER PAIN
     Dosage: CONCENTRATION 300MCG/ML; DOSE 187.76 MCG/DAY
     Route: 037
  2. CLONIDINE INTRATHECAL [Suspect]
     Indication: CANCER PAIN
     Dosage: CONCENTRATION 250MCG/ML; DOSE 156.47 MCG/DAY
     Route: 037
  3. BUPIVACAINE INTRATHECAL [Suspect]
     Dosage: 30MG/ML; DOSE 15.002MG/DAY
     Route: 037
  4. DILAUDID INTRATHECAL [Suspect]
     Dosage: CONCENTRATION 4MG/ML; DOSE 2.0002MG/DAY
     Route: 037

REACTIONS (6)
  - Sedation [None]
  - Asthenia [None]
  - Dizziness [None]
  - Nausea [None]
  - Dyspnoea [None]
  - Non-small cell lung cancer [None]
